FAERS Safety Report 20474620 (Version 1)
Quarter: 2022Q1

REPORT INFORMATION
  Report Type: Spontaneous
  Country: US (occurrence: None)
  Receive Date: 20220214
  Receipt Date: 20220214
  Transmission Date: 20220423
  Serious: Yes (Death)
  Sender: FDA-Public Use
  Company Number: None

PATIENT
  Age: 66 Year
  Sex: Female
  Weight: 94 kg

DRUGS (5)
  1. BARICITINIB [Suspect]
     Active Substance: BARICITINIB
     Indication: COVID-19
     Dates: start: 20220125, end: 20220204
  2. Dexamethasone 12 mg daily [Concomitant]
     Dates: start: 20220126, end: 20220203
  3. Dexamethasone 6 mg daily [Concomitant]
     Dates: start: 20220124, end: 20220125
  4. Dexamethasone 12 mg daily [Concomitant]
     Dates: end: 20220207
  5. Dexamethasone 6 mg daily [Concomitant]
     Dates: end: 20220209

REACTIONS (11)
  - Leukocytosis [None]
  - Pyrexia [None]
  - CSF lactate increased [None]
  - Tachycardia [None]
  - Hypertension [None]
  - Bacterial infection [None]
  - Staphylococcal bacteraemia [None]
  - Pneumonia bacterial [None]
  - Escherichia test positive [None]
  - Superinfection [None]
  - Respiratory failure [None]

NARRATIVE: CASE EVENT DATE: 20220204
